FAERS Safety Report 14610776 (Version 3)
Quarter: 2018Q2

REPORT INFORMATION
  Report Type: Spontaneous
  Country: JP (occurrence: JP)
  Receive Date: 20180308
  Receipt Date: 20180505
  Transmission Date: 20180711
  Serious: Yes (Other)
  Sender: FDA-Public Use
  Company Number: JP-ROCHE-2083266

PATIENT
  Age: 3 Year
  Sex: Female
  Weight: 14 kg

DRUGS (5)
  1. ASVERIN (TIPEPIDINE HIBENZATE) [Concomitant]
     Active Substance: TIPEPIDINE HIBENZATE
     Dosage: DOSAGE IS UNCERTAIN.
     Route: 065
     Dates: start: 20180209, end: 20180220
  2. TAMIFLU [Suspect]
     Active Substance: OSELTAMIVIR PHOSPHATE
     Dosage: DOSAGE IS UNCERTAIN.
     Route: 048
     Dates: start: 20180210, end: 20180213
  3. TAMIFLU [Suspect]
     Active Substance: OSELTAMIVIR PHOSPHATE
     Indication: INFLUENZA
     Dosage: DOSAGE IS UNCERTAIN.
     Route: 048
     Dates: start: 20180209, end: 20180209
  4. ALIMEZINE [Concomitant]
     Dosage: DOSAGE IS UNCERTAIN.
     Route: 065
     Dates: start: 20180209, end: 20180220
  5. MUCODYNE [Concomitant]
     Active Substance: CARBOCYSTEINE
     Dosage: DOSAGE IS UNCERTAIN.
     Route: 065
     Dates: start: 20180209, end: 20180220

REACTIONS (4)
  - Drug ineffective [Unknown]
  - Accidental overdose [Unknown]
  - Febrile convulsion [Unknown]
  - Drug eruption [Recovered/Resolved]

NARRATIVE: CASE EVENT DATE: 20180209
